FAERS Safety Report 15938672 (Version 2)
Quarter: 2020Q1

REPORT INFORMATION
  Report Type: Spontaneous
  Country: US (occurrence: US)
  Receive Date: 20190208
  Receipt Date: 20200121
  Transmission Date: 20200409
  Serious: No
  Sender: FDA-Public Use
  Company Number: US-SA-2019SA033993

PATIENT
  Age: 66 Year
  Sex: Female

DRUGS (20)
  1. OXYCODONE AND ACETAMINOPHEN [Concomitant]
     Active Substance: ACETAMINOPHEN\OXYCODONE HYDROCHLORIDE
  2. ALPRAZOLAM. [Concomitant]
     Active Substance: ALPRAZOLAM
  3. BACLOFEN. [Concomitant]
     Active Substance: BACLOFEN
  4. FENTANYL. [Concomitant]
     Active Substance: FENTANYL
     Dosage: 50 UG
  5. VASCEPA [Concomitant]
     Active Substance: ICOSAPENT ETHYL
  6. LEVOTHYROXINE. [Concomitant]
     Active Substance: LEVOTHYROXINE
  7. OXYBUTYNIN. [Concomitant]
     Active Substance: OXYBUTYNIN CHLORIDE
  8. VENLAFAXINE [Concomitant]
     Active Substance: VENLAFAXINE HYDROCHLORIDE
  9. FUROSEMIDE. [Concomitant]
     Active Substance: FUROSEMIDE
  10. VITAMIN D3 [Concomitant]
     Active Substance: CHOLECALCIFEROL
  11. VOLTAREN [Concomitant]
     Active Substance: DICLOFENAC SODIUM
  12. LISINOPRIL. [Concomitant]
     Active Substance: LISINOPRIL
  13. TEMAZEPAM. [Concomitant]
     Active Substance: TEMAZEPAM
  14. KLOR-CON [Concomitant]
     Active Substance: POTASSIUM CHLORIDE
  15. PIROXICAM. [Concomitant]
     Active Substance: PIROXICAM
  16. MELOXICAM. [Concomitant]
     Active Substance: MELOXICAM
  17. SERTRALINE HCL [Concomitant]
     Active Substance: SERTRALINE HYDROCHLORIDE
  18. AUBAGIO [Suspect]
     Active Substance: TERIFLUNOMIDE
     Indication: MULTIPLE SCLEROSIS
     Dosage: 14 MG, QD
     Route: 048
     Dates: start: 20190121
  19. ARIPIPRAZOLE. [Concomitant]
     Active Substance: ARIPIPRAZOLE
  20. TRAZODONE HYDROCHLORIDE. [Concomitant]
     Active Substance: TRAZODONE HYDROCHLORIDE

REACTIONS (2)
  - Product dose omission [Unknown]
  - Headache [Not Recovered/Not Resolved]

NARRATIVE: CASE EVENT DATE: 201901
